FAERS Safety Report 17689115 (Version 3)
Quarter: 2020Q4

REPORT INFORMATION
  Report Type: Report from Study
  Country: GB (occurrence: GB)
  Receive Date: 20200421
  Receipt Date: 20201230
  Transmission Date: 20210113
  Serious: Yes (Other)
  Sender: FDA-Public Use
  Company Number: GB-MYLANLABS-2020M1037912

PATIENT
  Age: 48 Year
  Sex: Female

DRUGS (48)
  1. BISOPROLOL [Concomitant]
     Active Substance: BISOPROLOL
     Dosage: 5 MILLIGRAM, QD
     Route: 048
     Dates: start: 20181030, end: 20200610
  2. BUDESONIDE. [Concomitant]
     Active Substance: BUDESONIDE
     Dosage: 9 MILLIGRAM
     Route: 048
     Dates: start: 20191016, end: 2019
  3. IBUPROFEN. [Concomitant]
     Active Substance: IBUPROFEN
     Dosage: UNK
     Route: 048
     Dates: end: 2019
  4. CARVEDILOL. [Concomitant]
     Active Substance: CARVEDILOL
     Dosage: 12.5 MILLIGRAM, 0.5 DAY
     Dates: end: 20180621
  5. CYCLIZINE [Concomitant]
     Active Substance: CYCLIZINE
     Indication: DYSPHAGIA
     Dosage: 50 MILLIGRAM, 0.33 DAY
     Route: 048
     Dates: start: 20180619, end: 2019
  6. TRASTUZUMAB. [Suspect]
     Active Substance: TRASTUZUMAB
     Dosage: 180 MILLIGRAM, 3XW, DISEASE PROGRESSION, FURTHER ANTICANCER TREATMENT
     Route: 042
     Dates: start: 20180904, end: 20190830
  7. PERTUZUMAB. [Suspect]
     Active Substance: PERTUZUMAB
     Dosage: 840 MILLIGRAM, QD, LOADING DOSE
     Route: 042
     Dates: start: 20160516, end: 20160516
  8. LANSOPRAZOLE. [Concomitant]
     Active Substance: LANSOPRAZOLE
     Indication: DYSPHAGIA
     Dosage: 30 MILLIGRAM, QD
     Route: 048
     Dates: start: 20180619, end: 20200701
  9. ZOPICLONE [Concomitant]
     Active Substance: ZOPICLONE
     Dosage: UNK
     Route: 048
     Dates: end: 2019
  10. CO-AMOXICLAV                       /00756801/ [Concomitant]
     Active Substance: AMOXICILLIN\CLAVULANIC ACID
     Indication: RESPIRATORY TRACT INFECTION
     Dosage: 1 TABLET, 0.33 DAY
     Route: 048
     Dates: start: 20171108, end: 20171115
  11. TRASTUZUMAB. [Suspect]
     Active Substance: TRASTUZUMAB
     Indication: HER2 POSITIVE BREAST CANCER
     Dosage: 350 MILLIGRAM, Q3W
     Route: 042
     Dates: start: 20160629, end: 20180524
  12. NERATINIB [Suspect]
     Active Substance: NERATINIB
     Indication: HER2 POSITIVE BREAST CANCER
     Dosage: 240 MILLIGRAM, QD
     Route: 048
     Dates: start: 20191016
  13. CANDESARTAN. [Concomitant]
     Active Substance: CANDESARTAN
     Dosage: 8 MILLIGRAM, QD
     Route: 048
     Dates: start: 20180724, end: 20200610
  14. FORTISIP [Concomitant]
     Active Substance: CARBOHYDRATES\FATTY ACIDS\MINERALS\PROTEIN\VITAMINS
     Indication: WEIGHT DECREASED
     Dosage: UNK
     Route: 048
     Dates: start: 20160525
  15. BENZYDAMINE HYDROCHLORIDE [Concomitant]
     Active Substance: BENZYDAMINE HYDROCHLORIDE
     Dosage: 15 MILLILITER
     Route: 060
     Dates: start: 20160525, end: 2017
  16. TRASTUZUMAB. [Suspect]
     Active Substance: TRASTUZUMAB
     Dosage: 400 MILLIGRAM, Q3W, DOSE AMENDED FOR WEIGHT
     Route: 042
     Dates: start: 20160606, end: 20160606
  17. CETIRIZINE [Concomitant]
     Active Substance: CETIRIZINE HYDROCHLORIDE
     Dosage: UNK
     Route: 048
     Dates: end: 2019
  18. IRON ISOMALTOSIDE 1000 [Concomitant]
     Active Substance: IRON ISOMALTOSIDE 1000
     Indication: BLOOD IRON DECREASED
     Dosage: 100 MILLIGRAM, QD
     Route: 030
     Dates: start: 20180626, end: 20180627
  19. FILGRASTIM [Concomitant]
     Active Substance: FILGRASTIM
     Indication: NEUTROPENIA
     Dosage: 300 MICROGRAM
     Route: 058
     Dates: start: 20160525, end: 20160827
  20. NYSTATIN. [Concomitant]
     Active Substance: NYSTATIN
     Dosage: UNK, 0.25 DAY
     Route: 048
     Dates: start: 20160525, end: 20200701
  21. PARACETAMOL [Concomitant]
     Active Substance: ACETAMINOPHEN
     Dosage: 1 GRAM, 0.25 DAY
     Route: 048
     Dates: end: 20200701
  22. OMEPRAZOLE. [Concomitant]
     Active Substance: OMEPRAZOLE
     Dosage: 20 MILLIGRAM
     Route: 048
     Dates: end: 20200619
  23. DOMPERIDONE                        /00498202/ [Concomitant]
     Active Substance: DOMPERIDONE MALEATE
     Dosage: 10 MILLIGRAM, 0.33 DAY
     Route: 048
     Dates: start: 20160512, end: 20160722
  24. TRASTUZUMAB. [Suspect]
     Active Substance: TRASTUZUMAB
     Dosage: 450 MILLIGRAM, QD, DOSE REDUCED, LOADING DOSE
     Route: 042
     Dates: start: 20160516, end: 20160516
  25. CANDESARTAN. [Concomitant]
     Active Substance: CANDESARTAN
     Dosage: 8 MILLIGRAM
     Route: 048
  26. CARVEDILOL. [Concomitant]
     Active Substance: CARVEDILOL
     Indication: EJECTION FRACTION DECREASED
     Dosage: 37.5 MILLIGRAM, QD
     Route: 048
     Dates: start: 20180621, end: 20180724
  27. MORPHINE SULFATE. [Concomitant]
     Active Substance: MORPHINE SULFATE
     Indication: BACK PAIN
     Dosage: 5 MILLIGRAM AS NEEDED, 0.5 DAY
     Route: 048
     Dates: start: 20180822, end: 20200630
  28. DOCETAXEL. [Suspect]
     Active Substance: DOCETAXEL
     Indication: HER2 POSITIVE BREAST CANCER
     Dosage: 100 MILLIGRAM, Q3W
     Route: 042
     Dates: start: 20160629, end: 20160720
  29. DEXAMETHASONE. [Concomitant]
     Active Substance: DEXAMETHASONE
     Dosage: 8 MILLIGRAM, 0.5 DAY
     Route: 048
  30. MORPHINE SULFATE. [Concomitant]
     Active Substance: MORPHINE SULFATE
     Dosage: 10 MILLIGRAM
     Route: 048
     Dates: start: 20180822
  31. HYOSCINE N-BUTYLBROMIDE [Concomitant]
     Active Substance: BUTYLSCOPOLAMINE
     Indication: SALIVARY HYPERSECRETION
     Dosage: 20 MILLIGRAM, 0.33 DAY
     Route: 048
     Dates: start: 20180619, end: 20200701
  32. CODEINE [Concomitant]
     Active Substance: CODEINE
     Dosage: 30 MILLIGRAM, 0.25 DAY
     Route: 048
     Dates: start: 20191009
  33. DOCETAXEL. [Suspect]
     Active Substance: DOCETAXEL
     Dosage: 124 MILLIGRAM, Q3W
     Route: 042
     Dates: start: 20160517, end: 20160609
  34. DOCETAXEL. [Suspect]
     Active Substance: DOCETAXEL
     Dosage: 85 MILLIGRAM, Q3W
     Route: 042
     Dates: start: 20160811, end: 20160831
  35. PERTUZUMAB. [Suspect]
     Active Substance: PERTUZUMAB
     Indication: HER2 POSITIVE BREAST CANCER
     Dosage: 840 MILLIGRAM, Q3W
     Route: 042
     Dates: start: 20160606, end: 20180524
  36. CAPECITABINE. [Suspect]
     Active Substance: CAPECITABINE
     Indication: HER2 POSITIVE BREAST CANCER
     Dosage: 2500 MILLIGRAM
     Dates: start: 20191016
  37. NAPROXEN. [Concomitant]
     Active Substance: NAPROXEN
     Dosage: 250 MILLIGRAM, 0.25 DAY
     Route: 048
     Dates: end: 2019
  38. MENTHOL;PARAFFIN, LIQUID;PETROLATUM [Concomitant]
     Dosage: 2 PERCENT, 0.33 DAY
     Route: 061
     Dates: start: 20160525, end: 2016
  39. TRAMADOL. [Concomitant]
     Active Substance: TRAMADOL
     Dosage: 50 MILLIGRAM, 0.25DAY
     Route: 048
     Dates: start: 20160429, end: 2019
  40. PERTUZUMAB. [Suspect]
     Active Substance: PERTUZUMAB
     Dosage: 420 MILLIGRAM, 3XW, INITIALLY TREATMENT INTERRUPTED DUE TO DECREASE EJECTION FRACTION
     Route: 042
     Dates: start: 20160606, end: 20180524
  41. CANDESARTAN. [Concomitant]
     Active Substance: CANDESARTAN
     Dosage: 16 MILLIGRAM
     Route: 048
     Dates: end: 20180723
  42. FORTISIP [Concomitant]
     Active Substance: CARBOHYDRATES\FATTY ACIDS\MINERALS\PROTEIN\VITAMINS
     Dosage: UNK, AS NEEDED
     Route: 048
     Dates: start: 20190123
  43. AMETOP                             /00041401/ [Concomitant]
     Dosage: 4 PERCENT
     Route: 061
     Dates: start: 20160831, end: 2019
  44. CARVEDILOL. [Concomitant]
     Active Substance: CARVEDILOL
     Dosage: 6.25 MILLIGRAM, 0.5 DAY
     Route: 048
     Dates: start: 20180724, end: 20181030
  45. LOPERAMIDE [Concomitant]
     Active Substance: LOPERAMIDE
     Dosage: AS NEEDED.
     Route: 048
     Dates: start: 20160516, end: 20200701
  46. CALCICHEW D3 FORTE [Concomitant]
     Active Substance: CALCIUM\CHOLECALCIFEROL
     Dosage: UNK
     Route: 048
     Dates: start: 20180822, end: 20200701
  47. ZOLEDRONIC ACID. [Concomitant]
     Active Substance: ZOLEDRONIC ACID
     Indication: BACK PAIN
     Dosage: 4 MILLIGRAM
     Route: 042
     Dates: start: 20180822, end: 20191017
  48. SALBUTAMOL [Concomitant]
     Active Substance: ALBUTEROL
     Dosage: UNK (0.5 DAY)
     Dates: end: 20200701

REACTIONS (3)
  - Mucosal inflammation [Not Recovered/Not Resolved]
  - Deep vein thrombosis [Recovered/Resolved]
  - Diarrhoea [Recovered/Resolved]

NARRATIVE: CASE EVENT DATE: 201606
